FAERS Safety Report 10722502 (Version 3)
Quarter: 2015Q2

REPORT INFORMATION
  Report Type: Spontaneous
  Country: IT (occurrence: IT)
  Receive Date: 20150120
  Receipt Date: 20150415
  Transmission Date: 20150821
  Serious: Yes (Hospitalization, Other)
  Sender: FDA-Public Use
  Company Number: IT-ROCHE-1522573

PATIENT
  Age: 48 Year
  Sex: Male

DRUGS (1)
  1. RIVOTRIL [Suspect]
     Active Substance: CLONAZEPAM
     Indication: PRODUCT USED FOR UNKNOWN INDICATION
     Dosage: 2.5MG/ML ORAL DROPS SOLUTION
     Route: 048
     Dates: start: 20150114, end: 20150114

REACTIONS (4)
  - Drug abuse [Unknown]
  - Sopor [Recovering/Resolving]
  - Hypotension [Recovering/Resolving]
  - Sedation [Recovering/Resolving]

NARRATIVE: CASE EVENT DATE: 20150114
